FAERS Safety Report 23421929 (Version 1)
Quarter: 2024Q1

REPORT INFORMATION
  Report Type: Spontaneous
  Country: JP (occurrence: JP)
  Receive Date: 20240119
  Receipt Date: 20240119
  Transmission Date: 20240410
  Serious: Yes (Hospitalization, Other)
  Sender: FDA-Public Use
  Company Number: JP-TAKEDA-2024TUS005371

PATIENT
  Age: 30 Year
  Sex: Female

DRUGS (3)
  1. LIALDA [Suspect]
     Active Substance: MESALAMINE
     Indication: Colitis ulcerative
     Dosage: 4800 MILLIGRAM, QD
     Route: 048
  2. BUDESONIDE [Suspect]
     Active Substance: BUDESONIDE
     Indication: Colitis ulcerative
     Dosage: 9 MILLIGRAM, QD
     Route: 065
     Dates: start: 20231001, end: 202311
  3. SIMPONI [Concomitant]
     Active Substance: GOLIMUMAB
     Indication: Colitis ulcerative
     Dosage: UNK
     Route: 065
     Dates: start: 202306

REACTIONS (3)
  - Pharyngitis [Unknown]
  - Colitis ulcerative [Unknown]
  - Drug intolerance [Unknown]

NARRATIVE: CASE EVENT DATE: 20231101
